FAERS Safety Report 6858959-9 (Version None)
Quarter: 2010Q3

REPORT INFORMATION
  Report Type: 
  Country: None (occurrence: None)
  Receive Date: 20100719
  Receipt Date: 20080217
  Transmission Date: 20110219
  Serious: No
  Sender: FDA-Public Use
  Company Number: US-PFIZER INC-2008016712

PATIENT
  Sex: Female
  Weight: 77.3 kg

DRUGS (5)
  1. CHANTIX [Suspect]
     Indication: SMOKING CESSATION THERAPY
     Dates: start: 20080101, end: 20080201
  2. HYDROCODONE [Concomitant]
  3. MORPHINE [Concomitant]
  4. KLONOPIN [Concomitant]
  5. PROZAC [Concomitant]

REACTIONS (1)
  - NIGHTMARE [None]
